FAERS Safety Report 11199369 (Version 1)
Quarter: 2015Q2

REPORT INFORMATION
  Report Type: Spontaneous
  Country: US (occurrence: None)
  Receive Date: 20150616
  Receipt Date: 20150616
  Transmission Date: 20150821
  Serious: Yes (Other)
  Sender: FDA-Public Use
  Company Number: None

PATIENT
  Age: 33 Year
  Sex: Female
  Weight: 104.33 kg

DRUGS (1)
  1. SKYLA [Suspect]
     Active Substance: LEVONORGESTREL

REACTIONS (12)
  - Complication of device insertion [None]
  - Medical device pain [None]
  - Dyspnoea [None]
  - Muscle spasms [None]
  - Flushing [None]
  - Back pain [None]
  - Anxiety [None]
  - Impaired work ability [None]
  - Palpitations [None]
  - Nausea [None]
  - Vomiting [None]
  - Quality of life decreased [None]

NARRATIVE: CASE EVENT DATE: 20150512
